FAERS Safety Report 10348209 (Version 1)
Quarter: 2014Q3

REPORT INFORMATION
  Report Type: Spontaneous
  Country: US (occurrence: US)
  Receive Date: 20140729
  Receipt Date: 20140729
  Transmission Date: 20150326
  Serious: Yes (Other)
  Sender: FDA-Public Use
  Company Number: US-GLAXOSMITHKLINE-A1082355A

PATIENT
  Age: 86 Year
  Sex: Female

DRUGS (11)
  1. ADVAIR HFA [Suspect]
     Active Substance: FLUTICASONE PROPIONATE\SALMETEROL XINAFOATE
     Indication: CHRONIC OBSTRUCTIVE PULMONARY DISEASE
     Dosage: 1PUFF TWICE PER DAY
     Route: 055
  2. LOSARTAN [Concomitant]
     Active Substance: LOSARTAN
  3. NEBULIZER [Concomitant]
     Active Substance: UNSPECIFIED INGREDIENT
  4. OXYGEN. [Concomitant]
     Active Substance: OXYGEN
  5. PILOCARPINE HCL [Concomitant]
     Active Substance: PILOCARPINE HYDROCHLORIDE
  6. LUMIGAN [Concomitant]
     Active Substance: BIMATOPROST
  7. LASIX [Concomitant]
     Active Substance: FUROSEMIDE
  8. XANAX [Concomitant]
     Active Substance: ALPRAZOLAM
  9. METFORMIN [Concomitant]
     Active Substance: METFORMIN HYDROCHLORIDE
  10. CARTIA XT [Concomitant]
     Active Substance: DILTIAZEM HYDROCHLORIDE
  11. ASPIRIN. [Concomitant]
     Active Substance: ASPIRIN

REACTIONS (2)
  - Glaucoma surgery [Recovering/Resolving]
  - Glaucoma [Recovering/Resolving]

NARRATIVE: CASE EVENT DATE: 2013
